FAERS Safety Report 7811772-8 (Version None)
Quarter: 2011Q4

REPORT INFORMATION
  Report Type: 
  Country: None (occurrence: None)
  Receive Date: 20111013
  Receipt Date: 20110929
  Transmission Date: 20120403
  Serious: Yes (Hospitalization, Disabling, Other)
  Sender: FDA-Public Use
  Company Number: US-ELI_LILLY_AND_COMPANY-US201106003742

PATIENT
  Sex: Female
  Weight: 41.723 kg

DRUGS (3)
  1. FORTEO [Suspect]
     Indication: OSTEOPOROSIS
     Dosage: 20 UG, QD
     Route: 065
     Dates: start: 20101210
  2. FORTEO [Suspect]
     Dosage: 20 UG, QD
     Dates: end: 20110801
  3. PREDNISONE [Concomitant]

REACTIONS (7)
  - PURULENCE [None]
  - PAIN IN EXTREMITY [None]
  - GAIT DISTURBANCE [None]
  - HYPOPHAGIA [None]
  - HOSPITALISATION [None]
  - SKIN LESION [None]
  - DRUG DOSE OMISSION [None]
